FAERS Safety Report 9753835 (Version 1)
Quarter: 2013Q4

REPORT INFORMATION
  Report Type: Spontaneous
  Country: US (occurrence: None)
  Receive Date: 20131211
  Receipt Date: 20131211
  Transmission Date: 20140711
  Serious: No
  Sender: FDA-Public Use
  Company Number: 2013SA126991

PATIENT
  Age: 17 Year
  Sex: Male

DRUGS (1)
  1. ICY HOT BALM [Suspect]
     Dates: start: 20131203

REACTIONS (4)
  - Application site urticaria [None]
  - Application site erythema [None]
  - Application site inflammation [None]
  - Pain [None]
